FAERS Safety Report 4833330-X (Version None)
Quarter: 2005Q4

REPORT INFORMATION
  Report Type: 
  Country: None (occurrence: None)
  Receive Date: 20051117
  Receipt Date: 20051107
  Transmission Date: 20060501
  Serious: Yes (Other)
  Sender: FDA-Public Use
  Company Number: 2005144148

PATIENT
  Age: 35 Year
  Sex: Male
  Weight: 71.1 kg

DRUGS (4)
  1. EPLERENONE (EPLERENONE) [Suspect]
     Indication: NEPHROPATHY
     Dosage: 25 MG (25 MG, 1 IN  24 HR), ORAL
     Route: 048
     Dates: start: 20050908
  2. COZAAR [Concomitant]
  3. SPIRIX (SPIRONOLACTONE) [Concomitant]
  4. SIMVASTATIN [Concomitant]

REACTIONS (6)
  - DEHYDRATION [None]
  - DRUG ADMINISTRATION ERROR [None]
  - GRAVITATIONAL OEDEMA [None]
  - GYNAECOMASTIA [None]
  - NEPHROTIC SYNDROME [None]
  - WEIGHT INCREASED [None]
